FAERS Safety Report 14664589 (Version 4)
Quarter: 2018Q3

REPORT INFORMATION
  Report Type: Spontaneous
  Country: US (occurrence: US)
  Receive Date: 20180321
  Receipt Date: 20180731
  Transmission Date: 20181010
  Serious: Yes (Death, Hospitalization, Other)
  Sender: FDA-Public Use
  Company Number: US-PFIZER INC-2018116440

PATIENT
  Age: 33 Year
  Sex: Female

DRUGS (4)
  1. LUPRON [Concomitant]
     Active Substance: LEUPROLIDE ACETATE
     Dosage: UNK
  2. FASLODEX [Concomitant]
     Active Substance: FULVESTRANT
     Indication: HORMONE SUPPRESSION THERAPY
     Dosage: UNK EVERY TWO WEEKS
     Route: 030
  3. XGEVA [Concomitant]
     Active Substance: DENOSUMAB
     Dosage: UNK
  4. IBRANCE [Suspect]
     Active Substance: PALBOCICLIB
     Indication: BREAST CANCER METASTATIC
     Dosage: 125 MG, 1X/DAY
     Dates: start: 201601, end: 201704

REACTIONS (10)
  - Neoplasm progression [Fatal]
  - Body temperature increased [Unknown]
  - Gait disturbance [Unknown]
  - Hepatic failure [Fatal]
  - Unresponsive to stimuli [Unknown]
  - Asthenia [Unknown]
  - Anxiety [Unknown]
  - Pain [Unknown]
  - Dysstasia [Unknown]
  - Jaundice [Unknown]

NARRATIVE: CASE EVENT DATE: 20171228
